FAERS Safety Report 5806403-2 (Version None)
Quarter: 2008Q3

REPORT INFORMATION
  Report Type: 
  Country: None (occurrence: None)
  Receive Date: 20080708
  Receipt Date: 20080625
  Transmission Date: 20090109
  Serious: Yes (Hospitalization, Other)
  Sender: FDA-Public Use
  Company Number: 08H-163-0314507-00

PATIENT
  Age: 20 Year
  Sex: Male
  Weight: 75 kg

DRUGS (7)
  1. FENTANYL CITRATE [Suspect]
     Indication: SEDATIVE THERAPY
     Dosage: 50 MCG, INTRAVENOUS; 50 MCG, INTRAVENOUS
     Route: 042
  2. LIDOCAINE HCL [Suspect]
     Indication: SEDATIVE THERAPY
     Dosage: 180 MCG, INTRAVENOUS
     Route: 042
  3. PROPOFOL [Concomitant]
     Indication: SEDATIVE THERAPY
     Dosage: 10 MG, INTRAVENOUS; 10 MG, INTRAVENOUS, 20 MG, INTRAVENOUS
  4. CANNABIS (CANNABIS SATIVA) [Suspect]
     Indication: DRUG USE FOR UNKNOWN INDICATION
  5. VERSED [Concomitant]
  6. DEXTROSE 5% (GLUCOSE) [Concomitant]
  7. 100% OXYGEN (OXYGEN) [Concomitant]

REACTIONS (16)
  - AGGRESSION [None]
  - AGITATION [None]
  - BLOOD PROLACTIN INCREASED [None]
  - CONVERSION DISORDER [None]
  - CONVULSION [None]
  - DELUSION [None]
  - DISORIENTATION [None]
  - DRUG SCREEN POSITIVE [None]
  - HEAD BANGING [None]
  - HEADACHE [None]
  - MYOCLONUS [None]
  - OPISTHOTONUS [None]
  - PARANOIA [None]
  - PSYCHOTIC DISORDER [None]
  - SELF-INJURIOUS IDEATION [None]
  - VOMITING [None]
